FAERS Safety Report 7760304-1 (Version None)
Quarter: 2011Q3

REPORT INFORMATION
  Report Type: 
  Country: None (occurrence: None)
  Receive Date: 20110919
  Receipt Date: 20110909
  Transmission Date: 20111222
  Serious: Yes (Death, Life-Threatening, Disabling, Other)
  Sender: FDA-Public Use
  Company Number: JP-CELGENEUS-087-50794-11040207

PATIENT
  Sex: Male

DRUGS (22)
  1. FILDESIN [Concomitant]
     Dosage: 3 MILLIGRAM
     Route: 041
     Dates: start: 20110322, end: 20110322
  2. DEXAMETHASONE SODIUM PHOSPHATE [Concomitant]
     Dosage: 6.6 MILLIGRAM
     Route: 041
     Dates: start: 20110319, end: 20110322
  3. LASIX [Concomitant]
     Dosage: 20 MILLIGRAM
     Route: 048
     Dates: start: 20110318, end: 20110319
  4. NEOAMIYU [Concomitant]
     Dosage: 10 MILLILITER
     Route: 041
     Dates: start: 20110319, end: 20110324
  5. MINOCYCLINE HYDROCHLORIDE [Concomitant]
     Dosage: 100 MILLIGRAM
     Route: 041
     Dates: start: 20110324, end: 20110324
  6. GRANISETRON [Concomitant]
     Dosage: 3 MILLIGRAM
     Route: 041
     Dates: start: 20110317, end: 20110319
  7. FLURBIPROFEN [Concomitant]
     Dosage: 50 MILLIGRAM
     Route: 041
     Dates: start: 20110324, end: 20110324
  8. LANSOPRAZOLE [Concomitant]
     Dosage: 30 MILLIGRAM
     Route: 048
     Dates: start: 20110317
  9. GLYCEOL [Concomitant]
     Route: 065
     Dates: start: 20110322, end: 20110322
  10. RADICUT [Concomitant]
     Dosage: 30 MILLIGRAM
     Route: 041
     Dates: start: 20110319, end: 20110319
  11. NOVOLIN R [Concomitant]
     Dosage: 6 IU (INTERNATIONAL UNIT)
     Route: 041
     Dates: start: 20110319, end: 20110324
  12. DIAZEPAM [Concomitant]
     Dosage: 10 MILLIGRAM
     Route: 041
     Dates: start: 20110324, end: 20110324
  13. AMIKACIN SULFATE [Concomitant]
     Dosage: 200 MILLIGRAM
     Route: 041
     Dates: start: 20110324, end: 20110324
  14. VIDAZA [Suspect]
     Indication: CHRONIC MYELOMONOCYTIC LEUKAEMIA
     Dosage: 65 MILLIGRAM/SQ. METER
     Route: 041
     Dates: start: 20110317, end: 20110319
  15. ORGARAN [Concomitant]
     Dosage: 1250 IU (INTERNATIONAL UNIT)
     Route: 041
     Dates: start: 20110319, end: 20110324
  16. ORGARAN [Concomitant]
     Dosage: 2500 IU (INTERNATIONAL UNIT)
     Route: 041
     Dates: start: 20110317, end: 20110318
  17. FAMOTIDINE [Concomitant]
     Dosage: 10 MILLIGRAM
     Route: 041
     Dates: start: 20110320, end: 20110324
  18. ALLOPURINOL [Concomitant]
     Dosage: 100 MILLIGRAM
     Route: 048
     Dates: start: 20110317
  19. ITRACONAZOLE [Concomitant]
     Dosage: 20 MILLIGRAM
     Route: 048
     Dates: start: 20110317
  20. METHYLPREDNISOLONE SODIUM SUCCINATE [Concomitant]
     Dosage: 40 MILLIGRAM
     Route: 041
     Dates: start: 20110317, end: 20110322
  21. POLARAMINE [Concomitant]
     Dosage: 5 MILLIGRAM
     Route: 041
     Dates: start: 20110317, end: 20110322
  22. SODIUM BICARBONATE [Concomitant]
     Dosage: 40 MILLILITER
     Route: 041
     Dates: start: 20110318, end: 20110324

REACTIONS (6)
  - WHITE BLOOD CELL COUNT INCREASED [None]
  - RENAL IMPAIRMENT [None]
  - MOUTH HAEMORRHAGE [None]
  - SEPSIS [None]
  - DISSEMINATED INTRAVASCULAR COAGULATION [None]
  - HAEMORRHAGIC CEREBRAL INFARCTION [None]
